FAERS Safety Report 8199086-0 (Version None)
Quarter: 2012Q1

REPORT INFORMATION
  Report Type: 
  Country: None (occurrence: None)
  Receive Date: 20120309
  Receipt Date: 20120305
  Transmission Date: 20120608
  Serious: Yes (Other)
  Sender: FDA-Public Use
  Company Number: US-TEVA-318893USA

PATIENT
  Sex: Female

DRUGS (1)
  1. CLARAVIS [Suspect]
     Dosage: 5.7143 MILLIGRAM;
     Dates: start: 20111101, end: 20120101

REACTIONS (1)
  - UNINTENDED PREGNANCY [None]
